FAERS Safety Report 12811437 (Version 1)
Quarter: 2016Q4

REPORT INFORMATION
  Report Type: Spontaneous
  Country: US (occurrence: US)
  Receive Date: 20161005
  Receipt Date: 20161005
  Transmission Date: 20170207
  Serious: No
  Sender: FDA-Public Use
  Company Number: US-PFIZER INC-2016460644

PATIENT
  Sex: Female

DRUGS (1)
  1. XELJANZ XR [Suspect]
     Active Substance: TOFACITINIB CITRATE
     Dosage: 11 MG, UNK

REACTIONS (11)
  - Pain in extremity [Unknown]
  - Asthenia [Unknown]
  - Skin ulcer [Unknown]
  - Eyelid oedema [Unknown]
  - Hypoaesthesia [Unknown]
  - Joint swelling [Unknown]
  - Eye pain [Unknown]
  - Neck pain [Unknown]
  - Fatigue [Unknown]
  - Back pain [Unknown]
  - Arthralgia [Unknown]
